FAERS Safety Report 8552388-8 (Version None)
Quarter: 2012Q3

REPORT INFORMATION
  Report Type: 
  Country: None (occurrence: None)
  Receive Date: 20120731
  Receipt Date: 20120724
  Transmission Date: 20120928
  Serious: Yes (Death)
  Sender: FDA-Public Use
  Company Number: US-CELGENEUS-163-21880-12071009

PATIENT
  Sex: Male

DRUGS (5)
  1. PANTOPRAZOLE [Concomitant]
     Dosage: 40 MILLIGRAM
     Route: 060
  2. REVLIMID [Suspect]
     Indication: MULTIPLE MYELOMA
     Dosage: 6.6667 MILLIGRAM
     Route: 048
     Dates: start: 20120525, end: 20120529
  3. NITROGLYCERIN [Concomitant]
     Dosage: .4 MILLIGRAM
     Route: 060
  4. PHENYTOIN [Concomitant]
     Dosage: 400 MILLIGRAM
     Route: 060
  5. METOPROLOL TARTRATE [Concomitant]
     Dosage: 75 MILLIGRAM
     Route: 065

REACTIONS (1)
  - MULTIPLE MYELOMA [None]
